FAERS Safety Report 25386512 (Version 1)
Quarter: 2025Q2

REPORT INFORMATION
  Report Type: Spontaneous
  Country: RO (occurrence: RO)
  Receive Date: 20250602
  Receipt Date: 20250602
  Transmission Date: 20250717
  Serious: Yes (Other)
  Sender: ROCHE
  Company Number: RO-ROCHE-10000296367

PATIENT
  Age: 35 Year
  Sex: Female

DRUGS (4)
  1. PHESGO [Suspect]
     Active Substance: HYALURONIDASE-ZZXF\PERTUZUMAB\TRASTUZUMAB
     Indication: Breast neoplasm
     Route: 065
     Dates: start: 202312
  2. PACLITAXEL [Suspect]
     Active Substance: PACLITAXEL
     Indication: Breast neoplasm
     Route: 065
     Dates: start: 202312
  3. DOXORUBICIN [Suspect]
     Active Substance: DOXORUBICIN
     Indication: Breast neoplasm
     Route: 065
     Dates: start: 202309
  4. LETROZOLE [Suspect]
     Active Substance: LETROZOLE
     Indication: Breast cancer
     Dosage: DM1 - 3.6 MG/KG BW.
     Route: 065

REACTIONS (4)
  - Therapy partial responder [Unknown]
  - Lymphadenopathy [Unknown]
  - Arteriosclerosis [Unknown]
  - Metastasis [Unknown]

NARRATIVE: CASE EVENT DATE: 20240401
